FAERS Safety Report 11956083 (Version 1)
Quarter: 2016Q1

REPORT INFORMATION
  Report Type: Report from Study
  Country: CA (occurrence: CA)
  Receive Date: 20160126
  Receipt Date: 20160126
  Transmission Date: 20160526
  Serious: Yes (Hospitalization)
  Sender: FDA-Public Use
  Company Number: CA-ABBVIE-16P-028-1541991-00

PATIENT
  Sex: Male
  Weight: 84.9 kg

DRUGS (1)
  1. KALETRA [Suspect]
     Active Substance: LOPINAVIR\RITONAVIR
     Indication: ANTIRETROVIRAL THERAPY
     Route: 048
     Dates: start: 2010

REACTIONS (3)
  - Streptococcal infection [Unknown]
  - Staphylococcal infection [Unknown]
  - Malaise [Unknown]
